FAERS Safety Report 19003499 (Version 1)
Quarter: 2021Q1

REPORT INFORMATION
  Report Type: Report from Study
  Country: PL (occurrence: PL)
  Receive Date: 20210312
  Receipt Date: 20210312
  Transmission Date: 20210420
  Serious: Yes (Hospitalization)
  Sender: FDA-Public Use
  Company Number: PL-TG THERAPEUTICS INC.-UTX-TG205-202101849

PATIENT

DRUGS (3)
  1. BENDAMUSTINE [Suspect]
     Active Substance: BENDAMUSTINE
     Indication: NON-HODGKIN^S LYMPHOMA
     Dosage: 159 MILLIGRAM
     Route: 042
     Dates: start: 20180606
  2. UBLITUXIMAB [Suspect]
     Active Substance: UBLITUXIMAB
     Indication: NON-HODGKIN^S LYMPHOMA
     Dosage: 900 MILLIGRAM
     Route: 042
     Dates: start: 20180606
  3. UMBRALISIB [Suspect]
     Active Substance: UMBRALISIB
     Indication: NON-HODGKIN^S LYMPHOMA
     Dosage: 400 MILLIGRAM
     Route: 048
     Dates: start: 20180606, end: 20201229

REACTIONS (2)
  - COVID-19 [Recovered/Resolved]
  - Fatigue [Recovered/Resolved]

NARRATIVE: CASE EVENT DATE: 20210113
